FAERS Safety Report 6371356-8 (Version None)
Quarter: 2009Q3

REPORT INFORMATION
  Report Type: 
  Country: None (occurrence: None)
  Receive Date: 20090921
  Receipt Date: 20090921
  Transmission Date: 20100115
  Serious: Yes (Disabling, Other)
  Sender: FDA-Public Use
  Company Number: None

PATIENT
  Age: 62 Year
  Sex: Female
  Weight: 59.1 kg

DRUGS (3)
  1. ACTONEL [Suspect]
     Indication: OSTEOPENIA
     Dosage: 1 DAILY
     Dates: start: 20010101, end: 20080101
  2. ACTONEL [Suspect]
     Indication: OSTEOPOROSIS
     Dosage: 1 DAILY
     Dates: start: 20010101, end: 20080101
  3. ACTONEL [Suspect]
     Indication: RESORPTION BONE INCREASED
     Dosage: 1 DAILY
     Dates: start: 20010101, end: 20080101

REACTIONS (5)
  - BONE DISORDER [None]
  - GINGIVAL SWELLING [None]
  - IMPAIRED HEALING [None]
  - STOMATITIS [None]
  - TOOTHACHE [None]
